FAERS Safety Report 8799095 (Version 1)
Quarter: 2012Q4

REPORT INFORMATION
  Report Type: 
  Country: US (occurrence: US)
  Receive Date: 20120920
  Receipt Date: 20120920
  Transmission Date: 20130627
  Serious: No
  Sender: FDA-Public Use
  Company Number: US-ASTRAZENECA-2011SE66946

PATIENT
  Age: 65 Year
  Sex: Female
  Weight: 68 kg

DRUGS (7)
  1. LISINOPRIL [Suspect]
     Route: 048
     Dates: end: 201110
  2. METOPROLOL SUCCINATE [Suspect]
     Indication: HEART RATE IRREGULAR
     Route: 048
     Dates: start: 2004
  3. METOPROLOL SUCCINATE [Suspect]
     Indication: SICK SINUS SYNDROME
     Route: 048
     Dates: start: 2004
  4. METOPROLOL SUCCINATE [Suspect]
     Indication: BLOOD PRESSURE
     Route: 048
     Dates: start: 2004
  5. METOPROLOL SUCCINATE [Suspect]
     Indication: HEART RATE IRREGULAR
     Route: 048
  6. METOPROLOL SUCCINATE [Suspect]
     Indication: SICK SINUS SYNDROME
     Route: 048
  7. METOPROLOL SUCCINATE [Suspect]
     Indication: BLOOD PRESSURE
     Route: 048

REACTIONS (4)
  - Blood pressure increased [Unknown]
  - Gastrooesophageal reflux disease [Unknown]
  - Headache [Unknown]
  - Off label use [Unknown]
